FAERS Safety Report 8156232-2 (Version None)
Quarter: 2012Q1

REPORT INFORMATION
  Report Type: 
  Country: None (occurrence: None)
  Receive Date: 20120222
  Receipt Date: 20120220
  Transmission Date: 20120608
  Serious: Yes (Death)
  Sender: FDA-Public Use
  Company Number: IT-PFIZER INC-2010158915

PATIENT
  Age: 50 Year
  Sex: Female

DRUGS (2)
  1. FLUCONAZOLE [Suspect]
     Indication: INFECTIOUS DISEASE CARRIER
     Dosage: UNK
     Route: 042
     Dates: start: 20100601
  2. ANIDULAFUNGIN [Suspect]
     Dosage: UNK

REACTIONS (1)
  - LIVER INJURY [None]
